FAERS Safety Report 16588738 (Version 3)
Quarter: 2019Q4

REPORT INFORMATION
  Report Type: Spontaneous
  Country: DE (occurrence: DE)
  Receive Date: 20190718
  Receipt Date: 20191003
  Transmission Date: 20200122
  Serious: Yes (Other)
  Sender: FDA-Public Use
  Company Number: US-AUROBINDO-AUR-APL-2019-037425

PATIENT

DRUGS (4)
  1. TERBINAFINE PUREN 250 MG TABLET [Suspect]
     Active Substance: TERBINAFINE
     Indication: ONYCHOMYCOSIS
     Dosage: UNK
     Route: 048
     Dates: start: 201805, end: 20190613
  2. PANTOPRAZOLE [Concomitant]
     Active Substance: PANTOPRAZOLE
     Indication: ANTACID THERAPY
     Dosage: 20 MILLIGRAM WITH TERBINAFINE
     Route: 048
  3. TERBINAFINE PUREN 250 MG TABLET [Suspect]
     Active Substance: TERBINAFINE
     Dosage: 250 MILLIGRAM, ONCE A WEEK
     Route: 048
     Dates: start: 20190614
  4. MEDIKINET [Suspect]
     Active Substance: METHYLPHENIDATE
     Indication: ATTENTION DEFICIT/HYPERACTIVITY DISORDER
     Dosage: UNK
     Route: 048
     Dates: start: 201805

REACTIONS (5)
  - Abdominal pain upper [Recovering/Resolving]
  - Frequent bowel movements [Recovered/Resolved]
  - Abdominal pain [Recovering/Resolving]
  - Condition aggravated [Recovered/Resolved]
  - Faeces soft [Recovered/Resolved]

NARRATIVE: CASE EVENT DATE: 201805
